FAERS Safety Report 9090636 (Version 1)
Quarter: 2013Q1

REPORT INFORMATION
  Report Type: Report from Study
  Country: US (occurrence: US)
  Receive Date: 20130131
  Receipt Date: 20130131
  Transmission Date: 20140127
  Serious: No
  Sender: FDA-Public Use
  Company Number: US-ABBOTT-12P-163-1022582-00

PATIENT
  Sex: Female
  Weight: 150.73 kg

DRUGS (6)
  1. HUMIRA [Suspect]
     Indication: RHEUMATOID ARTHRITIS
     Dates: start: 2011, end: 201211
  2. LISINOPRIL HCTZ [Concomitant]
     Indication: HYPERTENSION
  3. KLOR-CON [Concomitant]
     Indication: BLOOD POTASSIUM DECREASED
  4. PREDNISONE [Concomitant]
     Indication: RHEUMATOID ARTHRITIS
  5. HYDROCODONE W/APAP [Concomitant]
     Indication: PAIN
  6. AMLODIPINE [Concomitant]
     Indication: HYPERTENSION

REACTIONS (2)
  - Ear infection [Recovering/Resolving]
  - Diarrhoea [Recovered/Resolved]
